FAERS Safety Report 5044517-8 (Version None)
Quarter: 2006Q2

REPORT INFORMATION
  Report Type: 
  Country: None (occurrence: None)
  Receive Date: 20060629
  Receipt Date: 20060619
  Transmission Date: 20061013
  Serious: Yes (Death, Other)
  Sender: FDA-Public Use
  Company Number: 2006-DE-03193GD

PATIENT
  Age: 57 Year
  Sex: Female

DRUGS (2)
  1. PREDNISONE TAB [Suspect]
     Indication: SYSTEMIC SCLEROSIS
     Dosage: 5 MG
  2. METHOTREXATE [Concomitant]

REACTIONS (3)
  - CARDIAC FAILURE [None]
  - RESORPTION BONE INCREASED [None]
  - VENTRICULAR DYSFUNCTION [None]
